FAERS Safety Report 8984523 (Version 2)
Quarter: 2013Q2

REPORT INFORMATION
  Report Type: Spontaneous
  Country: US (occurrence: None)
  Receive Date: 20120508
  Receipt Date: 20120709
  Transmission Date: 20140414
  Serious: No
  Sender: FDA-Public Use
  Company Number: 2011HGS-002960

PATIENT
  Age: 55 Year
  Sex: Female
  Weight: 96.62 kg

DRUGS (21)
  1. BENLYSTA [Suspect]
     Indication: SYSTEMIC LUPUS ERYTHEMATOSUS
     Dosage: 1 IN 14 D, INTRAVENOUS DRIP
     Route: 041
     Dates: start: 20111205, end: 20111229
  2. PREDNISONE [Concomitant]
  3. IBUPROFEN [Concomitant]
  4. VICODIN (VICODIN) (PARACETAMOL, HYDROCODONE BITARTRATE) [Concomitant]
  5. SYNTHROID (LEVOTHYROXINE SODIUM) [Concomitant]
  6. XANAX (ALPRAZOLAM) [Concomitant]
  7. PEPTOBISMOL (BISMUTH SUBSALICYLATE) [Concomitant]
  8. ADVAIR (SERETIDE) (FLUTICASONE PROPIONATE, SALMETEROL XINAFOATE) [Concomitant]
  9. ALBUTEROL (SALBUTAMOL) [Concomitant]
  10. ALENDRONATE (ALENDRONATE SODIUM) [Concomitant]
  11. ASPIRIN (ACETYSALICYLIC ACID) [Concomitant]
  12. BUMETANIDE [Concomitant]
  13. CARISOPRODOL [Concomitant]
  14. FIORICET (AXOTAL) (CAFFEINE, BUTALBITAL, PARACETAMOL) [Concomitant]
  15. GABAPENTIN [Concomitant]
  16. LIDODERM (LIDOCAINE) [Concomitant]
  17. TERAZOSIN [Concomitant]
  18. VERAPAMIL [Concomitant]
  19. PROZAC (FLUOXETINE HYDROCHLORIDE) [Concomitant]
  20. NORVASC (AMLODIPINE BESILATE) [Concomitant]
  21. VERAPAMIL [Concomitant]

REACTIONS (5)
  - Central nervous system lesion [None]
  - Hallucination [None]
  - Anxiety [None]
  - Urinary tract infection [None]
  - Headache [None]
